FAERS Safety Report 6750320-0 (Version None)
Quarter: 2010Q2

REPORT INFORMATION
  Report Type: 
  Country: None (occurrence: None)
  Receive Date: 20100601
  Receipt Date: 20100526
  Transmission Date: 20101027
  Serious: Yes (Hospitalization)
  Sender: FDA-Public Use
  Company Number: BE-SANOFI-AVENTIS-2010SA028599

PATIENT
  Age: 65 Year
  Sex: Female
  Weight: 50 kg

DRUGS (10)
  1. OXALIPLATIN [Suspect]
     Indication: RECTAL CANCER
     Route: 041
  2. CAPECITABINE [Suspect]
     Indication: RECTAL CANCER
     Route: 048
     Dates: start: 20090916
  3. CAPECITABINE [Suspect]
     Route: 048
     Dates: end: 20100426
  4. NOBITEN [Concomitant]
     Dates: start: 20091210
  5. SIMVASTATIN [Concomitant]
     Dates: start: 20041203
  6. ASPIRIN [Concomitant]
     Dates: start: 19990101
  7. LORAZEPAM [Concomitant]
     Indication: INSOMNIA
     Dates: start: 20090921
  8. LORAZEPAM [Concomitant]
     Route: 048
     Dates: start: 20091202
  9. DAFALGAN [Concomitant]
     Dates: start: 20091210
  10. MAALOX [Concomitant]
     Dates: start: 20100204

REACTIONS (4)
  - COLITIS [None]
  - FUNGAL INFECTION [None]
  - HERPES OESOPHAGITIS [None]
  - MENINGIOMA [None]
